FAERS Safety Report 5756865-4 (Version None)
Quarter: 2008Q2

REPORT INFORMATION
  Report Type: 
  Country: None (occurrence: None)
  Receive Date: 20080603
  Receipt Date: 20080521
  Transmission Date: 20081010
  Serious: Yes (Other)
  Sender: FDA-Public Use
  Company Number: US-SP-2008-01696

PATIENT
  Age: 61 Year
  Sex: Male

DRUGS (4)
  1. IMOVAX RABIES I.D. [Suspect]
     Indication: ACCIDENTAL EXPOSURE
     Route: 065
  2. IMMUNOGLOBULIN HUMAN ANTIRABIES [Suspect]
     Indication: THERAPEUTIC PROCEDURE
     Route: 065
  3. LIPITOR [Concomitant]
  4. ASPIRIN [Concomitant]
     Dosage: DAILY

REACTIONS (5)
  - ARTHRALGIA [None]
  - LYMPHADENOPATHY [None]
  - MALAISE [None]
  - MUSCULOSKELETAL DISCOMFORT [None]
  - MYALGIA [None]
